FAERS Safety Report 12840049 (Version 2)
Quarter: 2016Q4

REPORT INFORMATION
  Report Type: Spontaneous
  Country: US (occurrence: US)
  Receive Date: 20161012
  Receipt Date: 20161020
  Transmission Date: 20170207
  Serious: Yes (Other)
  Sender: FDA-Public Use
  Company Number: US-PFIZER INC-2016471727

PATIENT
  Age: 28 Year
  Sex: Male

DRUGS (1)
  1. DEXTROMETHORPHAN HBR W/PSEUDOEPHEDRINE HCL [Suspect]
     Active Substance: DEXTROMETHORPHAN\PSEUDOEPHEDRINE HYDROCHLORIDE
     Indication: COUGH
     Dosage: UNK (3 BOTTLES), DAILY
     Route: 048

REACTIONS (2)
  - Mania [Recovered/Resolved]
  - Drug abuse [Unknown]
